FAERS Safety Report 7097802-2 (Version None)
Quarter: 2010Q4

REPORT INFORMATION
  Report Type: 
  Country: None (occurrence: None)
  Receive Date: 20101103
  Receipt Date: 20101025
  Transmission Date: 20110411
  Serious: Yes (Other)
  Sender: FDA-Public Use
  Company Number: DSA_43962_2010

PATIENT
  Sex: Female

DRUGS (18)
  1. XENAZINE [Suspect]
     Indication: HUNTINGTON'S DISEASE
     Dosage: SEE IMAGE
     Route: 048
     Dates: start: 20100610, end: 20100705
  2. XENAZINE [Suspect]
     Indication: TARDIVE DYSKINESIA
     Dosage: SEE IMAGE
     Route: 048
     Dates: start: 20100610, end: 20100705
  3. XENAZINE [Suspect]
     Indication: HUNTINGTON'S DISEASE
     Dosage: SEE IMAGE
     Route: 048
     Dates: start: 20100706, end: 20100809
  4. XENAZINE [Suspect]
     Indication: TARDIVE DYSKINESIA
     Dosage: SEE IMAGE
     Route: 048
     Dates: start: 20100706, end: 20100809
  5. XENAZINE [Suspect]
     Indication: HUNTINGTON'S DISEASE
     Dosage: SEE IMAGE
     Route: 048
     Dates: start: 20100801, end: 20100913
  6. XENAZINE [Suspect]
     Indication: TARDIVE DYSKINESIA
     Dosage: SEE IMAGE
     Route: 048
     Dates: start: 20100801, end: 20100913
  7. XENAZINE [Suspect]
     Indication: HUNTINGTON'S DISEASE
     Dosage: SEE IMAGE
     Route: 048
     Dates: start: 20100901, end: 20100928
  8. XENAZINE [Suspect]
     Indication: TARDIVE DYSKINESIA
     Dosage: SEE IMAGE
     Route: 048
     Dates: start: 20100901, end: 20100928
  9. ABILIFY [Concomitant]
  10. BUSPIRONE HCL [Concomitant]
  11. RITALIN [Concomitant]
  12. LORAZEPAM [Concomitant]
  13. VITAMIN D3 [Concomitant]
  14. FISH OIL [Concomitant]
  15. BENADRYL [Concomitant]
  16. FLAXSEED OIL [Concomitant]
  17. MULTI-VITAMINS [Concomitant]
  18. METFORMIN HCL [Concomitant]

REACTIONS (5)
  - CRYING [None]
  - DEPRESSION [None]
  - DISEASE RECURRENCE [None]
  - INSOMNIA [None]
  - PSYCHOTIC DISORDER [None]
